FAERS Safety Report 6742360-2 (Version None)
Quarter: 2010Q2

REPORT INFORMATION
  Report Type: 
  Country: None (occurrence: None)
  Receive Date: 20100526
  Receipt Date: 20100517
  Transmission Date: 20101027
  Serious: Yes (Other)
  Sender: FDA-Public Use
  Company Number: FR-BRISTOL-MYERS SQUIBB COMPANY-15116643

PATIENT
  Age: 62 Year
  Sex: Male

DRUGS (9)
  1. GLUCOPHAGE [Suspect]
     Indication: TYPE 2 DIABETES MELLITUS
     Route: 048
     Dates: start: 20100222
  2. ALCOHOL [Suspect]
  3. EXFORGE [Concomitant]
     Indication: HYPERTENSION
     Dosage: STARTED SEVERAL YRS AGO-ONG.
  4. SKENAN [Concomitant]
     Indication: BACK PAIN
     Dosage: STARTED SEVERAL YRS AGO-ONG.
  5. SKENAN [Concomitant]
     Indication: JOINT PROSTHESIS USER
     Dosage: STARTED SEVERAL YRS AGO-ONG.
  6. SKENAN [Concomitant]
     Dosage: STARTED SEVERAL YRS AGO-ONG.
  7. MORPHINE SULFATE [Concomitant]
     Indication: BACK PAIN
     Dosage: STARTED SEVERAL YRS AGO-ONG.
  8. MORPHINE SULFATE [Concomitant]
     Indication: JOINT PROSTHESIS USER
     Dosage: STARTED SEVERAL YRS AGO-ONG.
  9. MORPHINE SULFATE [Concomitant]
     Dosage: STARTED SEVERAL YRS AGO-ONG.

REACTIONS (1)
  - CYTOLYTIC HEPATITIS [None]
